FAERS Safety Report 7287726-X (Version None)
Quarter: 2011Q1

REPORT INFORMATION
  Report Type: 
  Country: None (occurrence: None)
  Receive Date: 20110208
  Receipt Date: 20110208
  Transmission Date: 20110831
  Serious: Yes (Hospitalization)
  Sender: FDA-Public Use
  Company Number: None

PATIENT
  Age: 54 Year
  Sex: Male
  Weight: 78.9259 kg

DRUGS (6)
  1. AMLODIPINE [Concomitant]
  2. ALLOPURINOL [Concomitant]
  3. NAPROXEN [Suspect]
     Indication: TENDONITIS
     Dosage: 500 MG BID PRN PO
     Route: 048
     Dates: start: 20110110, end: 20110203
  4. TOPROL-XL [Concomitant]
  5. VYTORIN [Concomitant]
  6. DOXAZOSIN [Concomitant]

REACTIONS (4)
  - LOSS OF CONSCIOUSNESS [None]
  - DIZZINESS [None]
  - NAUSEA [None]
  - BLOOD PRESSURE INCREASED [None]
